FAERS Safety Report 18958939 (Version 1)
Quarter: 2021Q1

REPORT INFORMATION
  Report Type: Spontaneous
  Country: BR (occurrence: BR)
  Receive Date: 20210302
  Receipt Date: 20210302
  Transmission Date: 20210420
  Serious: Yes (Death, Other)
  Sender: FDA-Public Use
  Company Number: BR-SA-2020SA343344

PATIENT
  Sex: Male
  Weight: 41.3 kg

DRUGS (3)
  1. MYOZYME [Suspect]
     Active Substance: ALGLUCOSIDASE ALFA
     Indication: GLYCOGEN STORAGE DISEASE TYPE II
     Dosage: 18 DF, Q15D
     Route: 041
     Dates: start: 2018
  2. MYOZYME [Suspect]
     Active Substance: ALGLUCOSIDASE ALFA
     Dosage: 16 DF, Q15D
     Route: 041
     Dates: end: 20201013
  3. PROPANOLOL [PROPRANOLOL] [Concomitant]
     Active Substance: PROPRANOLOL HYDROCHLORIDE
     Dosage: 40 MG
     Dates: start: 2012

REACTIONS (2)
  - Pneumonia [Fatal]
  - Product dose omission issue [Unknown]
